FAERS Safety Report 11791152 (Version 1)
Quarter: 2015Q4

REPORT INFORMATION
  Report Type: Spontaneous
  Country: US (occurrence: US)
  Receive Date: 20151201
  Receipt Date: 20151201
  Transmission Date: 20160305
  Serious: No
  Sender: FDA-Public Use
  Company Number: US-MALLINCKRODT-T201502439

PATIENT
  Sex: Female
  Weight: 73 kg

DRUGS (2)
  1. HYDROMORPHONE [Suspect]
     Active Substance: HYDROMORPHONE
     Indication: INTERVERTEBRAL DISC DEGENERATION
     Dosage: 1 TAB Q4H
     Route: 048
     Dates: start: 20150430, end: 201505
  2. HYDROMORPHONE [Concomitant]
     Active Substance: HYDROMORPHONE
     Dosage: UNK

REACTIONS (2)
  - Hypoaesthesia [Unknown]
  - Disorientation [Unknown]

NARRATIVE: CASE EVENT DATE: 2015
